FAERS Safety Report 7693048-5 (Version None)
Quarter: 2011Q3

REPORT INFORMATION
  Report Type: 
  Country: None (occurrence: None)
  Receive Date: 20110819
  Receipt Date: 20110815
  Transmission Date: 20111222
  Serious: Yes (Other)
  Sender: FDA-Public Use
  Company Number: US-SANOFI-AVENTIS-2011SA052250

PATIENT
  Age: 39 Year
  Sex: Female

DRUGS (2)
  1. ANTINEOPLASTIC AGENTS [Suspect]
  2. LOVENOX [Suspect]
     Indication: DEEP VEIN THROMBOSIS
     Dosage: DOSES VARIED OVER 6 YEARS
     Route: 065
     Dates: start: 20040101, end: 20100101

REACTIONS (4)
  - BONE LESION [None]
  - BONE NEOPLASM MALIGNANT [None]
  - OSTEOPENIA [None]
  - OSTEOPOROSIS [None]
